FAERS Safety Report 18011104 (Version 2)
Quarter: 2020Q3

REPORT INFORMATION
  Report Type: Spontaneous
  Country: GB (occurrence: GB)
  Receive Date: 20200711
  Receipt Date: 20200717
  Transmission Date: 20201103
  Serious: Yes (Other)
  Sender: FDA-Public Use
  Company Number: NVSC2020GB192189

PATIENT
  Sex: Male

DRUGS (3)
  1. ROSUVASTATIN. [Suspect]
     Active Substance: ROSUVASTATIN
     Indication: PRODUCT USED FOR UNKNOWN INDICATION
     Dosage: UNK
     Route: 065
     Dates: start: 2013
  2. ROSUVASTATIN. [Suspect]
     Active Substance: ROSUVASTATIN
     Dosage: UNK
     Route: 065
  3. ROSUVASTATIN. [Suspect]
     Active Substance: ROSUVASTATIN
     Dosage: UNK (DAILY DOSE)
     Route: 048

REACTIONS (6)
  - Muscle strength abnormal [Unknown]
  - Product substitution issue [Unknown]
  - Lip swelling [Recovered/Resolved]
  - Malaise [Unknown]
  - Urticaria [Recovered/Resolved]
  - Angioedema [Recovered/Resolved]
